FAERS Safety Report 7562315-8 (Version None)
Quarter: 2011Q2

REPORT INFORMATION
  Report Type: 
  Country: None (occurrence: None)
  Receive Date: 20110622
  Receipt Date: 20110613
  Transmission Date: 20111010
  Serious: Yes (Other)
  Sender: FDA-Public Use
  Company Number: US-JNJFOC-20110606107

PATIENT
  Sex: Female
  Weight: 58.97 kg

DRUGS (8)
  1. DURAGESIC-100 [Suspect]
     Indication: PAIN
     Route: 062
  2. NORCO [Concomitant]
     Indication: PAIN
     Dosage: 10-325MG/TABLET/10-325MG/EVERY EIGHT HOURS
     Route: 048
     Dates: start: 20110101
  3. MOTRIN [Concomitant]
     Indication: MIGRAINE
     Route: 048
  4. KLONOPIN [Concomitant]
     Indication: ANXIETY
     Route: 048
     Dates: start: 20110101
  5. PERCOCET [Concomitant]
     Indication: PAIN
     Dosage: 10-325MG/EVERY EIGHT HOURS/ORAL
     Route: 048
  6. AMBIEN [Concomitant]
     Indication: INSOMNIA
     Route: 048
     Dates: start: 20010101
  7. TOPAMAX [Concomitant]
     Indication: MIGRAINE
     Route: 048
  8. XANAX [Concomitant]
     Indication: ANXIETY
     Route: 065
     Dates: start: 20110101

REACTIONS (5)
  - DRUG DOSE OMISSION [None]
  - GLUCOSE TOLERANCE IMPAIRED [None]
  - DRUG DEPENDENCE [None]
  - BEDRIDDEN [None]
  - PRODUCT QUALITY ISSUE [None]
